FAERS Safety Report 14612580 (Version 1)
Quarter: 2018Q1

REPORT INFORMATION
  Report Type: Spontaneous
  Country: US (occurrence: US)
  Receive Date: 20180308
  Receipt Date: 20180308
  Transmission Date: 20180509
  Serious: No
  Sender: FDA-Public Use
  Company Number: US-GLAXOSMITHKLINE-US2018038392

PATIENT
  Sex: Male

DRUGS (6)
  1. FAMOTIDINE. [Concomitant]
     Active Substance: FAMOTIDINE
  2. HYDROCODONE [Concomitant]
     Active Substance: HYDROCODONE
  3. CARVEDILOL. [Concomitant]
     Active Substance: CARVEDILOL
  4. LISINOPRIL. [Concomitant]
     Active Substance: LISINOPRIL
  5. BREO ELLIPTA [Suspect]
     Active Substance: FLUTICASONE FUROATE\VILANTEROL TRIFENATATE
     Indication: CHRONIC OBSTRUCTIVE PULMONARY DISEASE
     Dosage: 100MCG/25MCG
     Route: 055
  6. NEBULIZED ALBUTEROL [Concomitant]
     Active Substance: ALBUTEROL

REACTIONS (3)
  - Wrong technique in device usage process [Unknown]
  - Dyspnoea [Unknown]
  - Medication error [Unknown]
